FAERS Safety Report 25508733 (Version 1)
Quarter: 2025Q3

REPORT INFORMATION
  Report Type: Report from Study
  Country: CA (occurrence: CA)
  Receive Date: 20250703
  Receipt Date: 20250703
  Transmission Date: 20251021
  Serious: Yes (Other)
  Sender: ROCHE
  Company Number: CA-ROCHE-10000325394

PATIENT
  Age: 63 Year
  Sex: Female
  Weight: 58 kg

DRUGS (4)
  1. ACTEMRA [Suspect]
     Active Substance: TOCILIZUMAB
     Indication: Endocrine ophthalmopathy
     Dosage: DRUG DOSE FIRST ADMINISTERED IS 280 MG MILLIGRAM(S)
     Route: 042
     Dates: start: 20240429
  2. SELENIUM [Concomitant]
     Active Substance: SELENIUM
  3. TAPAZOLE [Concomitant]
     Active Substance: METHIMAZOLE
  4. VITAMIN D [Concomitant]
     Active Substance: VITAMIN D NOS

REACTIONS (3)
  - Blood pressure diastolic increased [Not Recovered/Not Resolved]
  - Weight increased [Unknown]
  - Blood pressure diastolic abnormal [Not Recovered/Not Resolved]

NARRATIVE: CASE EVENT DATE: 20250626
